FAERS Safety Report 4872121-0 (Version None)
Quarter: 2005Q4

REPORT INFORMATION
  Report Type: 
  Country: None (occurrence: None)
  Receive Date: 20051230
  Receipt Date: 20051220
  Transmission Date: 20060501
  Serious: Yes (Other)
  Sender: FDA-Public Use
  Company Number: 2005171225

PATIENT
  Age: 60 Year
  Sex: Male
  Weight: 74.8435 kg

DRUGS (2)
  1. NARDIL [Suspect]
     Indication: DEPRESSION
     Dosage: 90 MG (15 MG, 3 IN 1 D)
  2. ALL OTHER THERPEUTIC PRODUCTS (ALL OTHER THERAPEUTIC PRODUCTS) [Suspect]
     Indication: ANXIETY

REACTIONS (8)
  - ANXIETY [None]
  - DISEASE RECURRENCE [None]
  - DRUG INEFFECTIVE [None]
  - HERNIA [None]
  - INSOMNIA [None]
  - PAIN [None]
  - SOMNOLENCE [None]
  - STOMACH DISCOMFORT [None]
